FAERS Safety Report 5014416-6 (Version None)
Quarter: 2006Q2

REPORT INFORMATION
  Report Type: 
  Country: None (occurrence: None)
  Receive Date: 20060525
  Receipt Date: 20060517
  Transmission Date: 20061013
  Serious: Yes (Death, Hospitalization)
  Sender: FDA-Public Use
  Company Number: DEWYE630317MAY06

PATIENT
  Age: 55 Year
  Sex: Male

DRUGS (2)
  1. VENLAFAXINE HCL [Suspect]
  2. ATOSIL (ISOPROMETHAZINE HYDROCHLORIDE, , 0) [Suspect]

REACTIONS (4)
  - AGITATION [None]
  - COMPLETED SUICIDE [None]
  - CONDITION AGGRAVATED [None]
  - INJURY ASPHYXIATION [None]
